FAERS Safety Report 5848329-4 (Version None)
Quarter: 2008Q3

REPORT INFORMATION
  Report Type: 
  Country: None (occurrence: None)
  Receive Date: 20080814
  Receipt Date: 20080806
  Transmission Date: 20090109
  Serious: Yes (Life-Threatening)
  Sender: FDA-Public Use
  Company Number: WAES 0807USA02395

PATIENT
  Age: 72 Year
  Sex: Female

DRUGS (6)
  1. HYZAAR [Suspect]
     Dosage: 1 DOSE/DAILY PO
     Route: 048
     Dates: start: 20071218
  2. GLIMICRON [Concomitant]
  3. GLYCORAN [Concomitant]
  4. LAXOBERON [Concomitant]
  5. PRAVASTATIN [Concomitant]
  6. NORVASC [Concomitant]

REACTIONS (2)
  - ANGINA UNSTABLE [None]
  - REFLUX OESOPHAGITIS [None]
